FAERS Safety Report 11107928 (Version 1)
Quarter: 2015Q2

REPORT INFORMATION
  Report Type: Report from Study
  Country: GB (occurrence: GB)
  Receive Date: 20150512
  Receipt Date: 20150512
  Transmission Date: 20150821
  Serious: Yes (Death, Hospitalization)
  Sender: FDA-Public Use
  Company Number: GB-PFIZER INC-2015155056

PATIENT
  Age: 27 Year
  Sex: Female

DRUGS (2)
  1. SODIUM BROMIDE [Concomitant]
     Active Substance: SODIUM BROMIDE
     Dosage: UNK UNK, 1X/DAY
  2. PHENYTOIN SODIUM. [Suspect]
     Active Substance: PHENYTOIN SODIUM
     Indication: GENERALISED TONIC-CLONIC SEIZURE
     Dosage: 0.4 G, 1X/DAY

REACTIONS (2)
  - Bronchopneumonia [Fatal]
  - Status epilepticus [Unknown]
